FAERS Safety Report 14232813 (Version 1)
Quarter: 2017Q4

REPORT INFORMATION
  Report Type: Spontaneous
  Country: US (occurrence: US)
  Receive Date: 20171129
  Receipt Date: 20171129
  Transmission Date: 20180321
  Serious: No
  Sender: FDA-Public Use
  Company Number: US-APOTEX-2017AP019349

PATIENT
  Sex: Male

DRUGS (7)
  1. TRAZODONE [Concomitant]
     Active Substance: TRAZODONE HYDROCHLORIDE
     Indication: SLEEP DISORDER
  2. IPROFEN [Concomitant]
     Indication: MIGRAINE
     Dosage: UNK, PRN
     Route: 048
  3. IPROFEN [Concomitant]
     Indication: HEADACHE
  4. EPIPEN [Concomitant]
     Active Substance: EPINEPHRINE
     Indication: HYPERSENSITIVITY
     Dosage: UNK, PRN
     Route: 065
  5. NICOTINE TRANSDERMAL SYSTEM [Suspect]
     Active Substance: NICOTINE
     Indication: SMOKING CESSATION THERAPY
     Dosage: 1 DF, QD
     Route: 062
     Dates: start: 201709
  6. TRAZODONE [Concomitant]
     Active Substance: TRAZODONE HYDROCHLORIDE
     Indication: BIPOLAR DISORDER
     Dosage: 100 MG, ONCE AT NIGHT
     Route: 048
  7. NICOTINE TRANSDERMAL SYSTEM [Suspect]
     Active Substance: NICOTINE
     Dosage: 21 MG, UNK
     Route: 062

REACTIONS (4)
  - Application site swelling [Not Recovered/Not Resolved]
  - Application site pruritus [Recovered/Resolved]
  - Vomiting [Recovered/Resolved]
  - Application site pain [Recovered/Resolved]
